FAERS Safety Report 9188120 (Version 1)
Quarter: 2013Q1

REPORT INFORMATION
  Report Type: Report from Study
  Country: BR (occurrence: BR)
  Receive Date: 20130325
  Receipt Date: 20130325
  Transmission Date: 20140127
  Serious: Yes (Other)
  Sender: FDA-Public Use
  Company Number: BR-ABBOTT-13P-020-1065808-00

PATIENT
  Sex: Male
  Weight: 85 kg

DRUGS (5)
  1. HUMIRA [Suspect]
     Indication: CROHN^S DISEASE
     Dosage: WEEK 0
     Route: 058
     Dates: start: 201203
  2. HUMIRA [Suspect]
     Dosage: WEEK 2
     Route: 058
  3. HUMIRA [Suspect]
     Route: 058
     Dates: end: 20120220
  4. PARACETAMOL, CAFFEINE AND CARISOPRODOL (DORILAX) [Concomitant]
     Indication: PAIN
     Route: 048
     Dates: start: 201303
  5. CIPROFLOXACIN [Concomitant]
     Indication: PRODUCT USED FOR UNKNOWN INDICATION

REACTIONS (5)
  - Anal fistula [Unknown]
  - Anorectal disorder [Unknown]
  - Hidradenitis [Unknown]
  - Proctalgia [Not Recovered/Not Resolved]
  - Crohn^s disease [Unknown]
